FAERS Safety Report 19574969 (Version 2)
Quarter: 2022Q3

REPORT INFORMATION
  Report Type: Report from Study
  Country: US (occurrence: US)
  Receive Date: 20210719
  Receipt Date: 20220713
  Transmission Date: 20221026
  Serious: No
  Sender: FDA-Public Use
  Company Number: US-VANDA PHARMACEUTICALS, INC-2021TASUS004735

PATIENT
  Sex: Male
  Weight: 79.365 kg

DRUGS (5)
  1. HETLIOZ [Suspect]
     Active Substance: TASIMELTEON
     Indication: Non-24-hour sleep-wake disorder
     Dosage: 20 MILLIGRAM, QHS
     Dates: start: 2012, end: 202107
  2. HETLIOZ [Suspect]
     Active Substance: TASIMELTEON
     Dosage: 20 MILLIGRAM, QD
     Route: 048
     Dates: start: 202202
  3. LEXAPRO [Concomitant]
     Active Substance: ESCITALOPRAM OXALATE
     Indication: Product used for unknown indication
  4. ADULT MULTIVITAMIN [Concomitant]
     Indication: Product used for unknown indication
  5. FLOMAX [Concomitant]
     Active Substance: TAMSULOSIN HYDROCHLORIDE
     Indication: Product used for unknown indication
     Dosage: 0.4 MILLIGRAM

REACTIONS (8)
  - Middle insomnia [Unknown]
  - Fatigue [Unknown]
  - Amnesia [Unknown]
  - Altered state of consciousness [Unknown]
  - Microsleep [Unknown]
  - Dysarthria [Unknown]
  - Feeling drunk [Unknown]
  - Product dose omission issue [Unknown]
